FAERS Safety Report 9331827 (Version 2)
Quarter: 2013Q3

REPORT INFORMATION
  Report Type: Report from Study
  Country: US (occurrence: US)
  Receive Date: 20130605
  Receipt Date: 20130923
  Transmission Date: 20140515
  Serious: Yes (Other)
  Sender: FDA-Public Use
  Company Number: US-GILEAD-2013-0076020

PATIENT
  Age: 31 Year
  Sex: Male

DRUGS (5)
  1. ELVITEGRAVIR/EMTRICITABINE/TENOFOVIR DF/COBICISTAT [Suspect]
     Indication: HIV INFECTION
     Dosage: 1 DF, QD
     Route: 048
     Dates: start: 20121001, end: 20130528
  2. FISH OIL [Concomitant]
     Indication: DYSLIPIDAEMIA
     Dosage: UNK
     Dates: start: 20130307
  3. MULTIVITAMINS [Concomitant]
     Dosage: UNK
     Dates: start: 20071019
  4. PROMETHAZINE - CODEINE             /01129901/ [Concomitant]
     Indication: COUGH
     Dosage: UNK
     Dates: start: 20130318
  5. SIMETHICONE [Concomitant]
     Indication: FLATULENCE
     Dosage: UNK
     Dates: start: 20121025

REACTIONS (1)
  - Hodgkin^s disease [Not Recovered/Not Resolved]
